FAERS Safety Report 25499808 (Version 1)
Quarter: 2025Q3

REPORT INFORMATION
  Report Type: Report from Study
  Country: PR (occurrence: PR)
  Receive Date: 20250701
  Receipt Date: 20250701
  Transmission Date: 20251021
  Serious: Yes (Other)
  Sender: ABBVIE
  Company Number: PR-ABBVIE-6347503

PATIENT
  Age: 54 Year
  Sex: Female

DRUGS (2)
  1. HUMIRA [Suspect]
     Active Substance: ADALIMUMAB
     Indication: Rheumatoid arthritis
     Dosage: CITRATE FREE
     Route: 058
     Dates: start: 20230330
  2. HUMIRA [Suspect]
     Active Substance: ADALIMUMAB
     Indication: Psoriatic arthropathy

REACTIONS (6)
  - Intervertebral disc protrusion [Recovering/Resolving]
  - Hypoaesthesia [Recovering/Resolving]
  - Arthralgia [Recovering/Resolving]
  - Neck pain [Not Recovered/Not Resolved]
  - Headache [Recovering/Resolving]
  - Paraesthesia [Not Recovered/Not Resolved]

NARRATIVE: CASE EVENT DATE: 20240101
